FAERS Safety Report 8239843-5 (Version None)
Quarter: 2012Q1

REPORT INFORMATION
  Report Type: 
  Country: None (occurrence: None)
  Receive Date: 20120327
  Receipt Date: 20120327
  Transmission Date: 20120608
  Serious: Yes (Other)
  Sender: FDA-Public Use
  Company Number: None

PATIENT
  Age: 56 Year
  Sex: Male
  Weight: 92.9874 kg

DRUGS (15)
  1. DIGOXIN [Concomitant]
  2. PRILOSEC [Concomitant]
  3. ASPIRIN [Concomitant]
  4. CYMBALTA [Concomitant]
  5. BENADRYL [Concomitant]
  6. VYTORIN [Concomitant]
  7. DILACOR XR [Concomitant]
  8. METFORMIN HCL [Concomitant]
  9. VITAMIN C (VITAMIN C) [Concomitant]
  10. VITAMIN E (TOCOPHERYL ACETATE) (TOCOPHEROL) [Concomitant]
  11. LISTERINE POCKETPAKS CINNAMON (ORAL CARE PRODUCTS) FILMSTRIP [Suspect]
     Indication: BREATH ODOUR
     Dosage: TWO TO FOUR STRIPS WITHIN FOUR HOURS ORAL
     Route: 048
  12. ANTI-ASTHMATICS (ANTI-ASTHMATICS) [Concomitant]
  13. LYRICA [Concomitant]
  14. CENTRUM SILVER (CENTRUM SILVER /01292501/) [Concomitant]
  15. FISH OIL (FISH OIL) [Concomitant]

REACTIONS (1)
  - BLOOD GLUCOSE INCREASED [None]
